FAERS Safety Report 23961938 (Version 1)
Quarter: 2024Q2

REPORT INFORMATION
  Report Type: Report from Study
  Country: US (occurrence: US)
  Receive Date: 20240611
  Receipt Date: 20240611
  Transmission Date: 20240716
  Serious: No
  Sender: FDA-Public Use
  Company Number: US-BIOVITRUM-2024-US-008405

PATIENT
  Sex: Female

DRUGS (1)
  1. DOPTELET [Suspect]
     Active Substance: AVATROMBOPAG MALEATE
     Indication: Immune thrombocytopenia
     Dosage: 20 MG TAKE 1 TABLET ON MONDAY, WEDNESDAY, FRIDAY AND SUNDAY.?TAKE 2 TABLETS ON TUESDAY, THURSDAY AND
     Route: 048

REACTIONS (1)
  - Rash [Recovered/Resolved]
